FAERS Safety Report 14102532 (Version 2)
Quarter: 2017Q4

REPORT INFORMATION
  Report Type: Spontaneous
  Country: PT (occurrence: PT)
  Receive Date: 20171018
  Receipt Date: 20171023
  Transmission Date: 20180321
  Serious: Yes (Hospitalization, Other)
  Sender: FDA-Public Use
  Company Number: PT-TEVA-2016-03222

PATIENT
  Age: 27 Year
  Sex: Female

DRUGS (26)
  1. MYCOPHENOLATE MOFETIL (UNKNOWN) [Suspect]
     Active Substance: MYCOPHENOLATE MOFETIL
     Indication: LUPUS CYSTITIS
     Dosage: 1.5 GRAM DAILY; 1.5 G, DAILY
     Route: 065
     Dates: start: 2012
  2. CYCLOPHOSPHAMIDE. [Suspect]
     Active Substance: CYCLOPHOSPHAMIDE
     Indication: LUPUS CYSTITIS
     Dosage: 25 MILLIGRAM DAILY; 750 MG, ONCE A MONTH
     Route: 065
     Dates: start: 2012
  3. CYCLOPHOSPHAMIDE. [Suspect]
     Active Substance: CYCLOPHOSPHAMIDE
     Indication: THROMBOTIC MICROANGIOPATHY
  4. COTRIMOXAZOLE [Suspect]
     Active Substance: SULFAMETHOXAZOLE\TRIMETHOPRIM
     Indication: PROPHYLAXIS
     Dosage: UNK
     Route: 065
     Dates: start: 2012
  5. CYCLOPHOSPHAMIDE. [Suspect]
     Active Substance: CYCLOPHOSPHAMIDE
     Indication: LUPUS NEPHRITIS
  6. PREDNISOLONE. [Suspect]
     Active Substance: PREDNISOLONE
     Indication: LUPUS CYSTITIS
     Dosage: 80 MILLIGRAM DAILY;
     Route: 065
  7. MYCOPHENOLATE MOFETIL (UNKNOWN) [Suspect]
     Active Substance: MYCOPHENOLATE MOFETIL
     Indication: LUPUS NEPHRITIS
  8. RITUXIMAB. [Suspect]
     Active Substance: RITUXIMAB
     Indication: THROMBOTIC MICROANGIOPATHY
  9. CALCIUM AND VIT D [Concomitant]
     Active Substance: CALCIUM\VITAMIN D
     Indication: SUPPLEMENTATION THERAPY
     Dosage: UNK
     Route: 065
     Dates: start: 2012
  10. METHYLPREDNISOLONE. [Suspect]
     Active Substance: METHYLPREDNISOLONE
     Indication: LUPUS NEPHRITIS
     Dosage: 500 MG, UNKNOWN
     Route: 042
     Dates: start: 2012
  11. TAMSULOSIN [Concomitant]
     Active Substance: TAMSULOSIN
     Indication: NEPHROPATHY
  12. NYSTATINE [Concomitant]
     Indication: ORAL CANDIDIASIS
     Dosage: 20 MILLIGRAM DAILY; UNK
     Route: 065
     Dates: start: 2012
  13. FUROSEMIDE. [Concomitant]
     Active Substance: FUROSEMIDE
     Indication: LUPUS CYSTITIS
     Dosage: 160 MILLIGRAM DAILY; 160 MG, DAILY
     Route: 065
     Dates: start: 2012
  14. PREDNISOLONE. [Suspect]
     Active Substance: PREDNISOLONE
     Indication: LUPUS NEPHRITIS
     Dosage: 10 MILLIGRAM DAILY; 10 MG, DAILY
     Route: 065
     Dates: start: 2007
  15. RITUXIMAB. [Suspect]
     Active Substance: RITUXIMAB
     Indication: LUPUS NEPHRITIS
  16. PREDNISOLONE. [Suspect]
     Active Substance: PREDNISOLONE
     Dosage: 60 MILLIGRAM DAILY; 60 MG, DAILY
     Route: 065
     Dates: start: 2012
  17. METHYLPREDNISOLONE. [Suspect]
     Active Substance: METHYLPREDNISOLONE
     Indication: LUPUS NEPHRITIS
  18. LISINOPRIL. [Concomitant]
     Active Substance: LISINOPRIL
     Indication: LUPUS CYSTITIS
     Dosage: 2.5 MILLIGRAM DAILY; 2.5 MG, DAILY
     Route: 065
     Dates: start: 2012
  19. LISINOPRIL. [Concomitant]
     Active Substance: LISINOPRIL
     Indication: NEPHROPATHY
  20. TAMSULOSIN [Concomitant]
     Active Substance: TAMSULOSIN
     Indication: LUPUS CYSTITIS
     Dosage: .4 MILLIGRAM DAILY; 0.4 MG, DAILY
     Route: 065
     Dates: start: 2012
  21. OMEPRAZOLE. [Concomitant]
     Active Substance: OMEPRAZOLE
     Indication: LUPUS CYSTITIS
     Dosage: 20 MILLIGRAM DAILY; 20 MG, DAILY
     Route: 065
     Dates: start: 2012
  22. OMEPRAZOLE. [Concomitant]
     Active Substance: OMEPRAZOLE
     Indication: NEPHROPATHY
  23. CEFTRIAXONE. [Concomitant]
     Active Substance: CEFTRIAXONE
     Indication: ESCHERICHIA INFECTION
  24. RITUXIMAB. [Suspect]
     Active Substance: RITUXIMAB
     Indication: LUPUS CYSTITIS
     Dosage: 52.5 MG/M2 DAILY; 375 MG/M2, 1/WEEK
     Route: 065
     Dates: start: 2012
  25. METHYLPREDNISOLONE. [Suspect]
     Active Substance: METHYLPREDNISOLONE
     Indication: LUPUS CYSTITIS
  26. FUROSEMIDE. [Concomitant]
     Active Substance: FUROSEMIDE
     Indication: NEPHROPATHY

REACTIONS (12)
  - Thrombocytopenia [Unknown]
  - Normochromic anaemia [Unknown]
  - Off label use [Unknown]
  - Bone marrow toxicity [Recovered/Resolved]
  - Pancytopenia [Recovering/Resolving]
  - Generalised oedema [Unknown]
  - Candiduria [Unknown]
  - Chorioretinitis [Recovering/Resolving]
  - Leukopenia [Unknown]
  - Oral candidiasis [Unknown]
  - Febrile neutropenia [Unknown]
  - Microangiopathic haemolytic anaemia [Unknown]
